FAERS Safety Report 7904830-0 (Version None)
Quarter: 2011Q4

REPORT INFORMATION
  Report Type: 
  Country: None (occurrence: None)
  Receive Date: 20111109
  Receipt Date: 20111026
  Transmission Date: 20120403
  Serious: Yes (Other)
  Sender: FDA-Public Use
  Company Number: PHEH2011US00603

PATIENT
  Sex: Male

DRUGS (3)
  1. GLEEVEC [Suspect]
     Indication: GASTRIC CANCER
     Dosage: 400 MG, DAILY
     Route: 048
     Dates: start: 20081024
  2. GLEEVEC [Suspect]
     Dosage: 400 MG, DAILY
     Route: 048
     Dates: start: 20110707
  3. GLEEVEC [Suspect]
     Dosage: 200 MG, DAILY
     Route: 048

REACTIONS (3)
  - ABDOMINAL DISCOMFORT [None]
  - GASTROINTESTINAL STROMAL TUMOUR [None]
  - IMPAIRED GASTRIC EMPTYING [None]
